FAERS Safety Report 7110640-7 (Version None)
Quarter: 2010Q4

REPORT INFORMATION
  Report Type: 
  Country: None (occurrence: None)
  Receive Date: 20101118
  Receipt Date: 20101111
  Transmission Date: 20110411
  Serious: Yes (Death)
  Sender: FDA-Public Use
  Company Number: DE-ROCHE-742036

PATIENT
  Sex: Male

DRUGS (1)
  1. XELODA [Suspect]
     Route: 065
     Dates: end: 20101021

REACTIONS (1)
  - MALIGNANT NEOPLASM PROGRESSION [None]
